FAERS Safety Report 18330309 (Version 16)
Quarter: 2021Q3

REPORT INFORMATION
  Report Type: Report from Study
  Country: US (occurrence: US)
  Receive Date: 20200930
  Receipt Date: 20210930
  Transmission Date: 20211014
  Serious: Yes (Hospitalization, Other)
  Sender: FDA-Public Use
  Company Number: US-GLAXOSMITHKLINE-US2020AMR167392

PATIENT
  Age: 68 Year
  Sex: Female

DRUGS (20)
  1. NIRAPARIB [Suspect]
     Active Substance: NIRAPARIB
     Dosage: 200 MG, QD
     Route: 048
     Dates: start: 2021
  2. NIRAPARIB [Suspect]
     Active Substance: NIRAPARIB
     Indication: MALIGNANT PERITONEAL NEOPLASM
     Dosage: 100 MG, QD
     Route: 048
     Dates: start: 202008
  3. NIRAPARIB [Suspect]
     Active Substance: NIRAPARIB
     Dosage: 200 MG, QD
     Route: 048
  4. NIRAPARIB [Suspect]
     Active Substance: NIRAPARIB
     Dosage: 200 MG, QD
     Route: 048
     Dates: start: 2021
  5. NIRAPARIB [Suspect]
     Active Substance: NIRAPARIB
     Dosage: 200 MG, QD
     Route: 048
     Dates: start: 2021
  6. NIRAPARIB [Suspect]
     Active Substance: NIRAPARIB
     Dosage: 200 MG, QD
  7. NIRAPARIB [Suspect]
     Active Substance: NIRAPARIB
     Dosage: 200 MG, QD
     Route: 048
     Dates: start: 2021, end: 20210619
  8. MAG OX [Suspect]
     Active Substance: MAGNESIUM OXIDE
     Indication: BLOOD MAGNESIUM DECREASED
     Dosage: 400 MG, BID
     Route: 048
  9. MAGNESIUM INFUSION [Concomitant]
     Indication: BLOOD MAGNESIUM DECREASED
     Dosage: UNK
  10. NIRAPARIB [Suspect]
     Active Substance: NIRAPARIB
     Dosage: 100 MG, QD
  11. NIRAPARIB [Suspect]
     Active Substance: NIRAPARIB
     Dosage: 200 MG, QD
     Route: 048
     Dates: start: 20210701
  12. NIRAPARIB [Suspect]
     Active Substance: NIRAPARIB
     Dosage: 200 MG, QD
  13. NIRAPARIB [Suspect]
     Active Substance: NIRAPARIB
     Dosage: 200 MG, QD
     Dates: start: 202101
  14. NIRAPARIB [Suspect]
     Active Substance: NIRAPARIB
     Dosage: 200 MG, QD
     Route: 048
     Dates: start: 202101
  15. NIRAPARIB [Suspect]
     Active Substance: NIRAPARIB
     Indication: NEOPLASM MALIGNANT
     Dosage: 100 MG, QD
     Route: 048
     Dates: start: 202009
  16. NIRAPARIB [Suspect]
     Active Substance: NIRAPARIB
     Dosage: 100 MG, QD
     Dates: start: 20201011
  17. NIRAPARIB [Suspect]
     Active Substance: NIRAPARIB
     Dosage: 100 MG, QD
  18. NIRAPARIB [Suspect]
     Active Substance: NIRAPARIB
     Dosage: 200 MG, QD
  19. NIRAPARIB [Suspect]
     Active Substance: NIRAPARIB
     Dosage: 100 MG, QD
     Route: 048
  20. MAGNESIUM [Concomitant]
     Active Substance: MAGNESIUM
     Indication: BLOOD MAGNESIUM DECREASED
     Dosage: UNK

REACTIONS (35)
  - Hepatic mass [Unknown]
  - Dehydration [Unknown]
  - Myalgia [Not Recovered/Not Resolved]
  - Hypotension [Unknown]
  - Decreased activity [Unknown]
  - Aspartate aminotransferase increased [Unknown]
  - Small intestinal obstruction [Recovered/Resolved]
  - Bone pain [Not Recovered/Not Resolved]
  - Fatigue [Recovering/Resolving]
  - Alanine aminotransferase increased [Unknown]
  - Speech sound disorder [Unknown]
  - Off label use [Unknown]
  - Vomiting [Recovered/Resolved]
  - Onychoclasis [Unknown]
  - Pruritus [Recovered/Resolved]
  - Gastrointestinal disorder [Unknown]
  - Trichorrhexis [Not Recovered/Not Resolved]
  - Sleep disorder [Not Recovered/Not Resolved]
  - Decreased appetite [Recovered/Resolved]
  - Blood pressure fluctuation [Recovered/Resolved]
  - Intestinal obstruction [Recovered/Resolved]
  - Nausea [Not Recovered/Not Resolved]
  - Arthralgia [Not Recovered/Not Resolved]
  - Dry mouth [Not Recovered/Not Resolved]
  - Back pain [Unknown]
  - Skin lesion [Recovered/Resolved]
  - Taste disorder [Recovering/Resolving]
  - Rash [Recovered/Resolved]
  - Red blood cell count decreased [Recovering/Resolving]
  - Asthenia [Recovering/Resolving]
  - Psoriasis [Recovered/Resolved]
  - Weight increased [Unknown]
  - Gastrointestinal tube removal [Unknown]
  - Anaemia macrocytic [Not Recovered/Not Resolved]
  - Milia [Not Recovered/Not Resolved]

NARRATIVE: CASE EVENT DATE: 202101
